FAERS Safety Report 12522962 (Version 3)
Quarter: 2016Q3

REPORT INFORMATION
  Report Type: Report from Study
  Country: IE (occurrence: IE)
  Receive Date: 20160701
  Receipt Date: 20160818
  Transmission Date: 20161109
  Serious: Yes (Death, Hospitalization, Other)
  Sender: FDA-Public Use
  Company Number: IE-BRISTOL-MYERS SQUIBB COMPANY-BMS-2016-032137

PATIENT
  Age: 60 Year
  Sex: Male
  Weight: 104 kg

DRUGS (8)
  1. ATORVASTATIN [Concomitant]
     Active Substance: ATORVASTATIN
     Indication: PREMEDICATION
     Dosage: UNK
     Route: 065
     Dates: start: 2005
  2. GLUCOPHAGE [Concomitant]
     Active Substance: METFORMIN HYDROCHLORIDE
     Indication: PREMEDICATION
     Dosage: UNK
     Route: 065
     Dates: start: 2012
  3. ASPIRIN                            /00002701/ [Concomitant]
     Active Substance: ASPIRIN
     Indication: PREMEDICATION
     Dosage: UNK
     Route: 065
     Dates: start: 2005
  4. DILZEM [Concomitant]
     Active Substance: DILTIAZEM
     Indication: PREMEDICATION
     Dosage: UNK
     Route: 065
     Dates: start: 2005
  5. PLENDIL [Concomitant]
     Active Substance: FELODIPINE
     Indication: PREMEDICATION
     Dosage: UNK
     Route: 065
     Dates: start: 2005
  6. CO VATAN [Concomitant]
     Indication: PREMEDICATION
     Dosage: UNK
     Route: 065
     Dates: start: 2012
  7. DIPROSALIC [Concomitant]
     Active Substance: BETAMETHASONE DIPROPIONATE
     Indication: ADVERSE EVENT
     Dosage: 1 G, UNK
     Route: 065
     Dates: start: 20151211
  8. NIVOLUMAB [Suspect]
     Active Substance: NIVOLUMAB
     Indication: MALIGNANT MELANOMA
     Dosage: 3 MG/KG, UNK
     Route: 042
     Dates: start: 20150821

REACTIONS (2)
  - Malignant neoplasm progression [Fatal]
  - Vomiting [Not Recovered/Not Resolved]

NARRATIVE: CASE EVENT DATE: 20160422
